FAERS Safety Report 24020626 (Version 1)
Quarter: 2024Q2

REPORT INFORMATION
  Report Type: Spontaneous
  Country: ES (occurrence: ES)
  Receive Date: 20240627
  Receipt Date: 20240627
  Transmission Date: 20240716
  Serious: Yes (Other)
  Sender: FDA-Public Use
  Company Number: ES-BAYER-2024A089242

PATIENT
  Sex: Male

DRUGS (1)
  1. DAROLUTAMIDE [Suspect]
     Active Substance: DAROLUTAMIDE
     Indication: Hormone-refractory prostate cancer
     Dosage: UNK
     Dates: start: 202103, end: 202403

REACTIONS (1)
  - Prostatic specific antigen increased [None]
